FAERS Safety Report 9643508 (Version 2)
Quarter: 2013Q4

REPORT INFORMATION
  Report Type: Spontaneous
  Country: DE (occurrence: None)
  Receive Date: 20131022
  Receipt Date: 20131101
  Transmission Date: 20140711
  Serious: Yes (Congenital Anomaly, Other)
  Sender: FDA-Public Use
  Company Number: AUR-APL-2013-08701

PATIENT
  Sex: Male
  Weight: 3.05 kg

DRUGS (4)
  1. MIRTAZAPINE [Suspect]
     Indication: DEPRESSION
     Route: 064
  2. CETRIZINE (CETIRIZINE HYDROCHLORIDE) [Concomitant]
  3. NASONEX (MOMETASONE FUROATE) [Concomitant]
  4. FOLSAEURE (FOLIC ACID) [Concomitant]

REACTIONS (7)
  - Foetal exposure during pregnancy [None]
  - Congenital aortic valve stenosis [None]
  - Congenital aortic valve incompetence [None]
  - Bicuspid aortic valve [None]
  - Cytogenetic abnormality [None]
  - Atrial septal defect [None]
  - Maternal drugs affecting foetus [None]
